FAERS Safety Report 13065204 (Version 1)
Quarter: 2016Q4

REPORT INFORMATION
  Report Type: Spontaneous
  Country: CN (occurrence: CN)
  Receive Date: 20161227
  Receipt Date: 20161227
  Transmission Date: 20170207
  Serious: Yes (Other)
  Sender: FDA-Public Use
  Company Number: CN-009507513-1612CHN013019

PATIENT
  Age: 50 Year
  Sex: Female
  Weight: 62.5 kg

DRUGS (1)
  1. TIENAM [Suspect]
     Active Substance: CILASTATIN SODIUM\IMIPENEM
     Indication: CENTRAL NERVOUS SYSTEM INFECTION
     Dosage: 1 G, BID
     Route: 041
     Dates: start: 20161008, end: 20161009

REACTIONS (1)
  - Epilepsy [Recovered/Resolved]

NARRATIVE: CASE EVENT DATE: 20161009
